FAERS Safety Report 23563602 (Version 1)
Quarter: 2024Q1

REPORT INFORMATION
  Report Type: Spontaneous
  Country: GB (occurrence: None)
  Receive Date: 20240226
  Receipt Date: 20240226
  Transmission Date: 20240410
  Serious: Yes (Disabling)
  Sender: FDA-Public Use
  Company Number: 2024A040411

PATIENT
  Age: 57 Year
  Sex: Male
  Weight: 102 kg

DRUGS (11)
  1. ROSUVASTATIN [Suspect]
     Active Substance: ROSUVASTATIN
     Indication: Blood cholesterol increased
     Dosage: 20
     Route: 048
     Dates: start: 20231129, end: 20240118
  2. INSULIN GLARGINE [Concomitant]
     Active Substance: INSULIN GLARGINE
     Dosage: USE AS DIRECTED
     Dates: start: 20230612
  3. ASPIRIN [Concomitant]
     Active Substance: ASPIRIN
     Dosage: 1
     Dates: start: 20190502
  4. ATORVASTATIN [Concomitant]
     Active Substance: ATORVASTATIN
     Dosage: 1
     Dates: start: 20230803
  5. BISOPROLOL [Concomitant]
     Active Substance: BISOPROLOL\BISOPROLOL FUMARATE
     Dosage: 1
     Dates: start: 20200302
  6. COCODAMOL [Concomitant]
     Active Substance: ACETAMINOPHEN\CODEINE PHOSPHATE
     Dosage: TAKE 1 OR 2
     Dates: start: 20211210
  7. GABAPENTIN [Concomitant]
     Active Substance: GABAPENTIN
     Dosage: TITRATE DOSE FROM ON ON DAY ONE 1 TWICE DAILY O...
     Dates: start: 20230612
  8. NITROGLYCERIN [Concomitant]
     Active Substance: NITROGLYCERIN
     Dosage: USE ONE TO TWO SPRAYS UNDER THE TONGUE
     Dates: start: 20190502
  9. METFORMIN [Concomitant]
     Active Substance: METFORMIN HYDROCHLORIDE
     Dosage: TITRATE UP TO FULL DOSE OF 2 TABLETS TWICE DAILY
     Dates: start: 20201009
  10. NOVORAPID [Concomitant]
     Active Substance: INSULIN ASPART
     Dosage: USE AS DIRECTED. FAST, SHORT ACTING INSULIN FOR...
     Dates: start: 20230619
  11. RAMIPRIL [Concomitant]
     Active Substance: RAMIPRIL
     Dosage: 1 TO REDUCE B...
     Dates: start: 20230605

REACTIONS (2)
  - Blood glucose fluctuation [Unknown]
  - Abdominal pain [Recovered/Resolved]
